FAERS Safety Report 16201706 (Version 1)
Quarter: 2019Q2

REPORT INFORMATION
  Report Type: Spontaneous
  Country: HU (occurrence: HU)
  Receive Date: 20190416
  Receipt Date: 20190416
  Transmission Date: 20190711
  Serious: Yes (Hospitalization)
  Sender: FDA-Public Use
  Company Number: HU-FERRINGPH-2019FE01938

PATIENT

DRUGS (1)
  1. MINIRIN [Suspect]
     Active Substance: DESMOPRESSIN ACETATE
     Indication: ENURESIS
     Dosage: UNK
     Route: 045

REACTIONS (13)
  - Drooling [Recovered/Resolved]
  - Brain oedema [Recovered/Resolved]
  - Fatigue [Recovered/Resolved]
  - Gaze palsy [Recovered/Resolved]
  - Abdominal pain [Recovered/Resolved]
  - Product use in unapproved indication [Recovered/Resolved]
  - Seizure [Recovered/Resolved]
  - Fluid retention [Recovered/Resolved]
  - Fatigue [Recovered/Resolved]
  - Consciousness fluctuating [Recovered/Resolved]
  - Vomiting [Recovered/Resolved]
  - Hyponatraemia [Recovered/Resolved]
  - Tremor [Recovered/Resolved]

NARRATIVE: CASE EVENT DATE: 20190128
